FAERS Safety Report 11757435 (Version 2)
Quarter: 2015Q4

REPORT INFORMATION
  Report Type: Spontaneous
  Country: GB (occurrence: GB)
  Receive Date: 20151120
  Receipt Date: 20151230
  Transmission Date: 20160304
  Serious: Yes (Other)
  Sender: FDA-Public Use
  Company Number: GB-WATSON-2015-24047

PATIENT
  Sex: Male

DRUGS (3)
  1. NICOTINE (UNKNOWN) [Suspect]
     Active Substance: NICOTINE
     Indication: PRODUCT USED FOR UNKNOWN INDICATION
     Dosage: UNK
     Route: 065
  2. NICORETTE [Suspect]
     Active Substance: NICOTINE
     Indication: SMOKING CESSATION THERAPY
     Dosage: 25 MG, UNK
     Route: 065
  3. PREFIBIN [Suspect]
     Active Substance: BUPRENORPHINE
     Indication: DRUG DEPENDENCE
     Dosage: UNK
     Route: 065

REACTIONS (12)
  - General physical health deterioration [Unknown]
  - Drug ineffective [Unknown]
  - Overdose [Not Recovered/Not Resolved]
  - Drug dependence [Not Recovered/Not Resolved]
  - Insomnia [Unknown]
  - Product quality issue [Unknown]
  - Loss of consciousness [Unknown]
  - Anxiety [Unknown]
  - Incontinence [Unknown]
  - Drug effect increased [Unknown]
  - Migraine [Unknown]
  - Withdrawal syndrome [Unknown]
